FAERS Safety Report 8549853-6 (Version None)
Quarter: 2012Q3

REPORT INFORMATION
  Report Type: 
  Country: None (occurrence: None)
  Receive Date: 20120730
  Receipt Date: 20110630
  Transmission Date: 20120928
  Serious: No
  Sender: FDA-Public Use
  Company Number: US-GLAXOSMITHKLINE-A0935161A

PATIENT
  Age: 59 Year
  Sex: Female

DRUGS (5)
  1. IMITREX [Suspect]
     Indication: MIGRAINE
     Dosage: 50MG AS REQUIRED
     Route: 048
     Dates: start: 19860101
  2. VICODIN [Concomitant]
  3. UNSPECIFIED MEDICATION [Suspect]
     Indication: MIGRAINE
  4. DIGESTIVE ENZYME [Concomitant]
  5. ASPIRIN [Concomitant]

REACTIONS (7)
  - DRUG INEFFECTIVE [None]
  - MIGRAINE [None]
  - ASTHENIA [None]
  - EPIGASTRIC DISCOMFORT [None]
  - URINARY RETENTION [None]
  - NAUSEA [None]
  - MUSCLE TIGHTNESS [None]
